FAERS Safety Report 11420106 (Version 1)
Quarter: 2015Q3

REPORT INFORMATION
  Report Type: Spontaneous
  Country: US (occurrence: None)
  Receive Date: 20150825
  Receipt Date: 20150825
  Transmission Date: 20151125
  Serious: Yes (Other)
  Sender: FDA-Public Use
  Company Number: None

PATIENT
  Age: 41 Year
  Sex: Female

DRUGS (1)
  1. EPIPEN JR [Suspect]
     Active Substance: EPINEPHRINE

REACTIONS (6)
  - Injection site pain [None]
  - Heart rate increased [None]
  - Needle issue [None]
  - Injury associated with device [None]
  - Expired product administered [None]
  - Device malfunction [None]

NARRATIVE: CASE EVENT DATE: 20150824
